FAERS Safety Report 6003973-9 (Version None)
Quarter: 2008Q4

REPORT INFORMATION
  Report Type: 
  Country: None (occurrence: None)
  Receive Date: 20081216
  Receipt Date: 20080527
  Transmission Date: 20090506
  Serious: Yes (Death, Hospitalization)
  Sender: FDA-Public Use
  Company Number: FR-PFIZER INC-2008101567

PATIENT
  Age: 58 Year
  Sex: Female
  Weight: 90 kg

DRUGS (11)
  1. IRINOTECAN HCL [Suspect]
     Indication: PANCREATIC CARCINOMA
     Dosage: 2X100 MG/M2 BI-MONTHLY
     Route: 042
     Dates: start: 20080417, end: 20080419
  2. FLUOROURACIL [Suspect]
     Indication: PANCREATIC CARCINOMA
     Dosage: 2000 MG/M2, BI-MONTHLY
     Route: 042
     Dates: start: 20080417, end: 20080417
  3. FOLINIC ACID [Suspect]
     Indication: PANCREATIC CARCINOMA
     Dosage: 200 MG/M2, BI-MONTHLY
     Route: 042
     Dates: start: 20080417, end: 20080417
  4. PANTOPRAZOLE SODIUM [Concomitant]
     Dosage: UNK
     Dates: start: 20080325
  5. ACETYLSALICYLIC ACID [Concomitant]
     Dosage: UNK
     Dates: start: 20080419
  6. CLOPIDOGREL SULFATE [Concomitant]
     Dosage: UNK
     Dates: start: 20080430
  7. ACETYLSALICYLATE LYSINE [Concomitant]
     Dosage: UNK
     Dates: start: 20080430
  8. TINZAPARIN SODIUM [Concomitant]
     Dosage: UNK
     Dates: start: 20080430
  9. FENTANYL [Concomitant]
     Dosage: UNK
     Dates: start: 20080411
  10. OXYCODONE HYDROCHLORIDE [Concomitant]
     Dosage: UNK
     Dates: start: 20080415
  11. ONDANSETRON [Concomitant]
     Dosage: UNK
     Dates: start: 20080430

REACTIONS (8)
  - ASCITES [None]
  - CONFUSIONAL STATE [None]
  - DYSPNOEA [None]
  - GENERAL PHYSICAL HEALTH DETERIORATION [None]
  - HALLUCINATION, VISUAL [None]
  - HEPATIC FUNCTION ABNORMAL [None]
  - OEDEMA PERIPHERAL [None]
  - RENAL FAILURE ACUTE [None]
